FAERS Safety Report 7744802-2 (Version None)
Quarter: 2011Q3

REPORT INFORMATION
  Report Type: 
  Country: None (occurrence: None)
  Receive Date: 20110912
  Receipt Date: 20110912
  Transmission Date: 20111222
  Serious: Yes (Life-Threatening, Hospitalization)
  Sender: FDA-Public Use
  Company Number: None

PATIENT
  Age: 47 Year
  Sex: Female
  Weight: 57.152 kg

DRUGS (1)
  1. RECLAST [Suspect]
     Indication: OSTEOPOROSIS
     Dosage: 5MG
     Route: 041
     Dates: start: 20110818, end: 20110818

REACTIONS (11)
  - ARTHRALGIA [None]
  - LOSS OF CONSCIOUSNESS [None]
  - VOMITING [None]
  - FATIGUE [None]
  - MYALGIA [None]
  - FEELING HOT [None]
  - HEADACHE [None]
  - DIARRHOEA [None]
  - CARDIAC FAILURE CONGESTIVE [None]
  - FLUSHING [None]
  - PERICARDITIS [None]
